FAERS Safety Report 25220447 (Version 3)
Quarter: 2025Q2

REPORT INFORMATION
  Report Type: Spontaneous
  Country: US (occurrence: US)
  Receive Date: 20250421
  Receipt Date: 20250516
  Transmission Date: 20250716
  Serious: No
  Sender: PFIZER
  Company Number: US-PFIZER INC-202500057966

PATIENT
  Age: 16 Year
  Sex: Male

DRUGS (1)
  1. GENOTROPIN [Suspect]
     Active Substance: SOMATROPIN
     Dosage: 3.2 MG 7 DAYS/WEEK
     Dates: start: 20240430

REACTIONS (3)
  - Device physical property issue [Unknown]
  - Poor quality device used [Unknown]
  - Drug dose omission by device [Unknown]
